FAERS Safety Report 6878182-1 (Version None)
Quarter: 2010Q3

REPORT INFORMATION
  Report Type: 
  Country: None (occurrence: None)
  Receive Date: 20100728
  Receipt Date: 20100715
  Transmission Date: 20110219
  Serious: Yes (Other)
  Sender: FDA-Public Use
  Company Number: CO-PFIZER INC-2010033910

PATIENT
  Age: 81 Year
  Sex: Male

DRUGS (5)
  1. DETRUSITOL [Suspect]
     Dosage: 2 MG, 1X/DAY
     Route: 048
     Dates: start: 20090318
  2. METFORMIN [Concomitant]
     Indication: DIABETES MELLITUS
     Dosage: 850 MG, 2X/DAY
     Dates: start: 20080101
  3. INSULIN [Concomitant]
     Indication: DIABETES MELLITUS
     Dosage: 24 IU, 2X/DAY
     Dates: start: 20080101
  4. METOPROLOL [Concomitant]
     Indication: BLOOD PRESSURE ABNORMAL
     Dosage: 50 MG, UNK
     Dates: start: 20090101
  5. ASPIRIN [Concomitant]
     Dosage: UNK

REACTIONS (2)
  - MASS [None]
  - VARICOSE ULCERATION [None]
